FAERS Safety Report 14029676 (Version 1)
Quarter: 2017Q4

REPORT INFORMATION
  Report Type: Report from Study
  Country: US (occurrence: US)
  Receive Date: 20171002
  Receipt Date: 20171002
  Transmission Date: 20180321
  Serious: Yes (Other)
  Sender: FDA-Public Use
  Company Number: US-JAZZ-2017-US-010862

PATIENT
  Sex: Female

DRUGS (42)
  1. XYREM [Suspect]
     Active Substance: SODIUM OXYBATE
     Dosage: 2.5 G, QD SECOND DOSE
     Route: 048
     Dates: start: 201604
  2. ATIVAN [Concomitant]
     Active Substance: LORAZEPAM
  3. CREATINE MONOHYDRATE [Concomitant]
     Active Substance: CREATINE MONOHYDRATE
  4. ALIGN [Concomitant]
     Active Substance: BIFIDOBACTERIUM LONGUM SUBSP. INFANTIS
  5. MAGNESIUM CITRATE. [Concomitant]
     Active Substance: MAGNESIUM CITRATE
  6. METROGEL [Concomitant]
     Active Substance: METRONIDAZOLE
  7. HYDROCHLOROTHIAZIDE. [Concomitant]
     Active Substance: HYDROCHLOROTHIAZIDE
  8. XYREM [Suspect]
     Active Substance: SODIUM OXYBATE
     Dosage: 2.5 G, BID
     Route: 048
     Dates: start: 20170817
  9. NICOTINAMIDE [Concomitant]
     Active Substance: NIACINAMIDE
  10. FISH OIL [Concomitant]
     Active Substance: FISH OIL
  11. ARMOUR THYROID [Concomitant]
     Active Substance: THYROID, PORCINE
  12. DHEA [Concomitant]
     Active Substance: PRASTERONE
  13. TURMERIC                           /01079601/ [Concomitant]
     Active Substance: HERBALS\TURMERIC
  14. XYREM [Suspect]
     Active Substance: SODIUM OXYBATE
     Indication: CHRONIC FATIGUE SYNDROME
     Dosage: 2.25 G, BID
     Route: 048
     Dates: start: 201406, end: 201406
  15. CYANOCOBALAMIN. [Concomitant]
     Active Substance: CYANOCOBALAMIN
  16. NYSTATIN. [Concomitant]
     Active Substance: NYSTATIN
  17. VITAMIN C [Concomitant]
     Active Substance: ASCORBIC ACID
  18. CALCIUM + VITAMIN D                /01483701/ [Concomitant]
     Active Substance: CALCIUM\VITAMIN D
  19. VITAMIN D3 [Concomitant]
     Active Substance: CHOLECALCIFEROL
  20. SELENIUM [Concomitant]
     Active Substance: SELENIUM
  21. COENZYME Q10 [Concomitant]
     Active Substance: UBIDECARENONE
  22. HUMATROPE [Concomitant]
     Active Substance: SOMATROPIN
  23. REISHI                             /01703601/ [Concomitant]
  24. D-RIBOSE [Concomitant]
     Active Substance: DIETARY SUPPLEMENT
  25. OMEGA-3                            /01866101/ [Concomitant]
     Active Substance: OMEGA-3 FATTY ACIDS
  26. NUVARING [Concomitant]
     Active Substance: ETHINYL ESTRADIOL\ETONOGESTREL
  27. CALCIUM ASCORBATE [Concomitant]
     Active Substance: CALCIUM ASCORBATE
  28. VITAMIN B12 [Concomitant]
     Active Substance: CYANOCOBALAMIN
  29. POTASSIUM CL [Concomitant]
     Active Substance: POTASSIUM CHLORIDE
  30. NUVIGIL [Concomitant]
     Active Substance: ARMODAFINIL
  31. 7-KETO-DHEA [Concomitant]
     Active Substance: 7-KETO-DEHYDROEPIANDROSTERONE
  32. BABY ASPIRIN [Concomitant]
     Active Substance: ASPIRIN
  33. XYREM [Suspect]
     Active Substance: SODIUM OXYBATE
     Dosage: DOSE ADJUSTMENT
     Route: 048
     Dates: start: 201406
  34. XYREM [Suspect]
     Active Substance: SODIUM OXYBATE
     Dosage: 2.50 G, QD FIRST DOSE
     Route: 048
  35. ESTRACE [Concomitant]
     Active Substance: ESTRADIOL
  36. KRILL OIL [Concomitant]
     Active Substance: DIETARY SUPPLEMENT
  37. GYNOSTEMMA PENTAPHYLLUM [Concomitant]
  38. CISTANCHE SPP. [Concomitant]
  39. MINIVELLE [Concomitant]
     Active Substance: ESTRADIOL
  40. RESVERATROL [Concomitant]
     Active Substance: DIETARY SUPPLEMENT\RESVERATROL
  41. NYSTATIN AND TRIAMCINOLONE [Concomitant]
     Active Substance: NYSTATIN\TRIAMCINOLONE ACETONIDE
  42. KLOR-CON M20 [Concomitant]
     Active Substance: POTASSIUM CHLORIDE

REACTIONS (7)
  - Abnormal behaviour [Unknown]
  - Suicidal ideation [Recovered/Resolved]
  - Adjustment disorder with depressed mood [Recovered/Resolved]
  - Snoring [Unknown]
  - Intentional product misuse [Unknown]
  - Panic attack [Recovering/Resolving]
  - Anxiety [Recovered/Resolved]
